FAERS Safety Report 8156444-8 (Version None)
Quarter: 2012Q1

REPORT INFORMATION
  Report Type: 
  Country: None (occurrence: None)
  Receive Date: 20120221
  Receipt Date: 20120221
  Transmission Date: 20120608
  Serious: Yes (Other)
  Sender: FDA-Public Use
  Company Number: None

PATIENT
  Sex: Female
  Weight: 75.7507 kg

DRUGS (1)
  1. BARACLUDE [Suspect]
     Indication: HEPATITIS C
     Dosage: 1MG ORAL DAILY
     Route: 048

REACTIONS (2)
  - RESPIRATORY DISORDER [None]
  - DYSPNOEA [None]
